FAERS Safety Report 6274778-9 (Version None)
Quarter: 2009Q3

REPORT INFORMATION
  Report Type: 
  Country: None (occurrence: None)
  Receive Date: 20090721
  Receipt Date: 20071211
  Transmission Date: 20100115
  Serious: Yes (Other)
  Sender: FDA-Public Use
  Company Number: US-ASTRAZENECA-2006UW11826

PATIENT
  Age: 57 Year
  Sex: Male
  Weight: 102.1 kg

DRUGS (8)
  1. SEROQUEL [Suspect]
     Indication: ANXIETY
     Route: 048
     Dates: start: 20000601
  2. SEROQUEL [Suspect]
     Indication: DEPRESSION
     Route: 048
     Dates: start: 20000601
  3. SEROQUEL [Suspect]
     Route: 048
     Dates: start: 20020926
  4. SEROQUEL [Suspect]
     Route: 048
     Dates: start: 20020926
  5. CELEXA [Concomitant]
     Dates: start: 20020206
  6. TRAZODONE [Concomitant]
     Dates: start: 20020515
  7. WELLBUTRIN SR [Concomitant]
     Dosage: STRENGTH- 100 MG, 150 MG
     Dates: start: 20020814
  8. LEXAPRO [Concomitant]
     Dosage: STRENGTH- 10 MG, 20 MG
     Dates: start: 20020926

REACTIONS (6)
  - AMNESIA [None]
  - BLOOD CHOLESTEROL INCREASED [None]
  - DIABETES MELLITUS [None]
  - KNEE ARTHROPLASTY [None]
  - MIGRAINE [None]
  - PULMONARY EMBOLISM [None]
